FAERS Safety Report 8166708-X (Version None)
Quarter: 2012Q1

REPORT INFORMATION
  Report Type: 
  Country: None (occurrence: None)
  Receive Date: 20120227
  Receipt Date: 20120216
  Transmission Date: 20120608
  Serious: Yes (Hospitalization)
  Sender: FDA-Public Use
  Company Number: US-SANOFI-AVENTIS-2012SA010673

PATIENT
  Age: 67 Year
  Sex: Female

DRUGS (2)
  1. MULTAQ [Suspect]
     Indication: ATRIAL FIBRILLATION
     Dosage: 200 MG
     Route: 048
     Dates: start: 20100701
  2. MULTAQ [Suspect]
     Dosage: HALF OF A 400 MG TABLET
     Route: 048

REACTIONS (2)
  - SPINAL CORD COMPRESSION [None]
  - INCORRECT DOSE ADMINISTERED [None]
